FAERS Safety Report 4462930-4 (Version None)
Quarter: 2004Q3

REPORT INFORMATION
  Report Type: 
  Country: None (occurrence: None)
  Receive Date: 20040927
  Receipt Date: 20040913
  Transmission Date: 20050211
  Serious: Yes (Other)
  Sender: FDA-Public Use
  Company Number: 2004053846

PATIENT
  Age: 31 Year
  Sex: Female

DRUGS (4)
  1. NEURONTIN [Suspect]
     Indication: NEUROPATHIC PAIN
     Dates: start: 20040501
  2. NORTRIPTYLINE HCL [Concomitant]
  3. CLONAZEPAM [Concomitant]
  4. ALL OTHER CONTRACEPTIVE DEVICE (INTRAUTERINE CONTRACEPTIVE UTERINE) [Concomitant]

REACTIONS (5)
  - BACK PAIN [None]
  - DIFFICULTY IN WALKING [None]
  - HEADACHE [None]
  - INTERVERTEBRAL DISC PROTRUSION [None]
  - PAIN IN EXTREMITY [None]
